FAERS Safety Report 4744004-8 (Version None)
Quarter: 2005Q3

REPORT INFORMATION
  Report Type: 
  Country: None (occurrence: None)
  Receive Date: 20050809
  Receipt Date: 20050726
  Transmission Date: 20060218
  Serious: Yes (Death)
  Sender: FDA-Public Use
  Company Number: US015696

PATIENT
  Age: 58 Year
  Sex: Male

DRUGS (4)
  1. ACTIQ [Suspect]
     Indication: CANCER PAIN
     Dosage: 200 UG QD BUCCAL
     Route: 002
     Dates: start: 20050428
  2. DURAGESIC-100 [Suspect]
     Indication: CANCER PAIN
     Dosage: 75 UG Q72HR TRANSDERMAL
     Route: 062
     Dates: start: 20050428
  3. SOLU-MEDROL [Concomitant]
  4. ANTIDEPRESSANT [Concomitant]

REACTIONS (1)
  - DISEASE PROGRESSION [None]
